FAERS Safety Report 8556450-5 (Version None)
Quarter: 2012Q3

REPORT INFORMATION
  Report Type: 
  Country: None (occurrence: None)
  Receive Date: 20120801
  Receipt Date: 20120727
  Transmission Date: 20120928
  Serious: Yes (Life-Threatening)
  Sender: FDA-Public Use
  Company Number: PHHY2012CA064956

PATIENT
  Age: 52 Year
  Sex: Male
  Weight: 87 kg

DRUGS (6)
  1. RASILEZ [Suspect]
     Dosage: 1 DF, QD
     Route: 048
  2. CRESTOR [Concomitant]
     Route: 048
  3. NOVO-LISINOPRIL [Concomitant]
  4. AMLODIPINE [Concomitant]
     Route: 048
  5. HYDROCHLOROTHIAZIDE [Concomitant]
     Route: 048
  6. ZYLOPRIM [Concomitant]

REACTIONS (3)
  - METASTASES TO LUNG [None]
  - RENAL CANCER METASTATIC [None]
  - RENAL HAEMORRHAGE [None]
